FAERS Safety Report 10626488 (Version 4)
Quarter: 2015Q1

REPORT INFORMATION
  Report Type: Spontaneous
  Country: BR (occurrence: BR)
  Receive Date: 20141204
  Receipt Date: 20150210
  Transmission Date: 20150720
  Serious: Yes (Other)
  Sender: FDA-Public Use
  Company Number: BR-PFIZER INC-2014328475

PATIENT
  Age: 14 Year
  Sex: Female

DRUGS (5)
  1. MINIPRESS [Suspect]
     Active Substance: PRAZOSIN HYDROCHLORIDE
     Indication: BLOOD PRESSURE INCREASED
  2. PROPRANOLOL [Concomitant]
     Active Substance: PROPRANOLOL\PROPRANOLOL HYDROCHLORIDE
  3. MINIPRESS [Suspect]
     Active Substance: PRAZOSIN HYDROCHLORIDE
     Indication: HYPERTENSION
     Dosage: 1 MG, 2X/DAY (IN THE MORNING AND AT NIGHT)
     Dates: start: 1993
  4. CAPTOPRIL. [Concomitant]
     Active Substance: CAPTOPRIL
  5. OMEPRAZOL [Concomitant]
     Active Substance: OMEPRAZOLE
     Dosage: UNK

REACTIONS (3)
  - Diabetes mellitus [Not Recovered/Not Resolved]
  - Depression [Recovered/Resolved]
  - Intentional product misuse [Not Recovered/Not Resolved]
